FAERS Safety Report 4449484-3 (Version None)
Quarter: 2004Q3

REPORT INFORMATION
  Report Type: 
  Country: None (occurrence: None)
  Receive Date: 20040910
  Receipt Date: 20040910
  Transmission Date: 20050211
  Serious: Yes (Hospitalization)
  Sender: FDA-Public Use
  Company Number: None

PATIENT
  Age: 63 Year
  Sex: Female
  Weight: 60.1016 kg

DRUGS (8)
  1. DOCETAXEL 20MG/ M2  AVENTIS [Suspect]
     Indication: NON-SMALL CELL LUNG CANCER
     Dosage: 32 MG IV
     Route: 042
     Dates: start: 20040819
  2. DOCETAXEL 20MG/ M2  AVENTIS [Suspect]
     Indication: NON-SMALL CELL LUNG CANCER
     Dosage: 32 MG IV
     Route: 042
     Dates: start: 20040824
  3. DOCETAXEL 20MG/ M2  AVENTIS [Suspect]
     Indication: NON-SMALL CELL LUNG CANCER
     Dosage: 32 MG IV
     Route: 042
     Dates: start: 20040827
  4. CARBOPLATIN [Suspect]
     Indication: NON-SMALL CELL LUNG CANCER
     Dosage: 230 MG IV
     Route: 042
     Dates: start: 20040819
  5. CARBOPLATIN [Suspect]
     Indication: NON-SMALL CELL LUNG CANCER
     Dosage: 230 MG IV
     Route: 042
     Dates: start: 20040824
  6. CARBOPLATIN [Suspect]
     Indication: NON-SMALL CELL LUNG CANCER
     Dosage: 230 MG IV
     Route: 042
     Dates: start: 20040827
  7. BRODEX OP DROPS [Concomitant]
  8. DARVOCET [Concomitant]

REACTIONS (3)
  - POST PROCEDURAL DIARRHOEA [None]
  - PYREXIA [None]
  - WHITE BLOOD CELL COUNT INCREASED [None]
